FAERS Safety Report 17350047 (Version 4)
Quarter: 2020Q2

REPORT INFORMATION
  Report Type: Report from Study
  Country: US (occurrence: US)
  Receive Date: 20200130
  Receipt Date: 20200407
  Transmission Date: 20200713
  Serious: Yes (Hospitalization)
  Sender: FDA-Public Use
  Company Number: US-B.I. PHARMACEUTICALS,INC./RIDGEFIELD-2019-BI-101553

PATIENT
  Age: 74 Year
  Sex: Male

DRUGS (1)
  1. OFEV [Suspect]
     Active Substance: NINTEDANIB
     Indication: IDIOPATHIC PULMONARY FIBROSIS
     Route: 048
     Dates: start: 20190725, end: 20200109

REACTIONS (8)
  - Decreased appetite [Unknown]
  - Hepatic enzyme increased [Not Recovered/Not Resolved]
  - Ageusia [Unknown]
  - Diarrhoea [Unknown]
  - Hepatic enzyme increased [Recovered/Resolved]
  - Internal haemorrhage [Recovered/Resolved]
  - Weight decreased [Unknown]
  - Internal haemorrhage [Recovered/Resolved]

NARRATIVE: CASE EVENT DATE: 20200110
